FAERS Safety Report 24710615 (Version 4)
Quarter: 2025Q1

REPORT INFORMATION
  Report Type: Report from Study
  Country: IN (occurrence: IN)
  Receive Date: 20241209
  Receipt Date: 20250321
  Transmission Date: 20250408
  Serious: Yes (Death, Hospitalization)
  Sender: ROCHE
  Company Number: IN-ROCHE-10000149340

PATIENT
  Age: 56 Year
  Sex: Female

DRUGS (3)
  1. TECENTRIQ [Suspect]
     Active Substance: ATEZOLIZUMAB
     Indication: Lung adenocarcinoma
     Route: 042
     Dates: start: 20241119
  2. TECENTRIQ [Suspect]
     Active Substance: ATEZOLIZUMAB
     Route: 042
  3. TECENTRIQ [Suspect]
     Active Substance: ATEZOLIZUMAB
     Route: 042
     Dates: start: 20241218

REACTIONS (3)
  - Respiratory disorder [Unknown]
  - Febrile infection [Unknown]
  - Embolism [Fatal]
